FAERS Safety Report 14780695 (Version 1)
Quarter: 2018Q2

REPORT INFORMATION
  Report Type: Spontaneous
  Country: US (occurrence: US)
  Receive Date: 20180419
  Receipt Date: 20180419
  Transmission Date: 20180711
  Serious: No
  Sender: FDA-Public Use
  Company Number: PHEH2018US014695

PATIENT
  Sex: Female

DRUGS (3)
  1. DOXIPAN [Concomitant]
     Indication: PRODUCT USED FOR UNKNOWN INDICATION
     Dosage: UNK
     Route: 065
  2. ALPRAZOLAM. [Concomitant]
     Active Substance: ALPRAZOLAM
     Indication: PRODUCT USED FOR UNKNOWN INDICATION
     Dosage: UNK
     Route: 065
  3. NADOLOL SANDOZ [Suspect]
     Active Substance: NADOLOL
     Indication: MIGRAINE
     Dosage: 3 DF, QHS
     Route: 065

REACTIONS (3)
  - Product availability issue [Unknown]
  - Palpitations [Unknown]
  - Malaise [Unknown]
